FAERS Safety Report 9406024 (Version 2)
Quarter: 2013Q3

REPORT INFORMATION
  Report Type: Spontaneous
  Country: DZ (occurrence: DZ)
  Receive Date: 20130717
  Receipt Date: 20130909
  Transmission Date: 20140515
  Serious: Yes (Hospitalization, Other)
  Sender: FDA-Public Use
  Company Number: DZ-MPIJNJ-2013-05390

PATIENT
  Sex: 0

DRUGS (4)
  1. VELCADE [Suspect]
     Indication: PLASMA CELL MYELOMA
     Dosage: 1 ML, UNK
     Route: 058
     Dates: start: 20130512, end: 201306
  2. DEXAMETHASONE [Concomitant]
     Indication: PLASMA CELL MYELOMA
     Dosage: 40 MG, UNK
     Route: 030
     Dates: start: 20130512, end: 20130616
  3. ENDOXAN                            /00021101/ [Concomitant]
     Indication: PLASMA CELL MYELOMA
     Dosage: 500 MG, UNK
     Route: 048
     Dates: start: 20130512, end: 20130616
  4. ZOLEDRONIC ACID [Concomitant]
     Indication: PLASMA CELL MYELOMA
     Dosage: 4 MG, UNK
     Route: 042
     Dates: start: 20130512, end: 20130616

REACTIONS (1)
  - Atrial fibrillation [Not Recovered/Not Resolved]
